FAERS Safety Report 7917730 (Version 3)
Quarter: 2012Q4

REPORT INFORMATION
  Report Type: Report from Study
  Country: TR (occurrence: TR)
  Receive Date: 20110428
  Receipt Date: 20121212
  Transmission Date: 20130627
  Serious: Yes (Death, Other)
  Sender: FDA-Public Use
  Company Number: TR-CELGENEUS-161-C5013-11041665

PATIENT
  Age: 57 Year
  Sex: Female

DRUGS (1)
  1. CC-5013 [Suspect]
     Indication: 5Q MINUS MYELODYSPLASTIC SYNDROME
     Dosage: 10 Milligram
     Route: 048
     Dates: start: 20100402, end: 20110217

REACTIONS (1)
  - Colon cancer metastatic [Fatal]
